FAERS Safety Report 4941753-3 (Version None)
Quarter: 2006Q1

REPORT INFORMATION
  Report Type: 
  Country: None (occurrence: None)
  Receive Date: 20060308
  Receipt Date: 20060223
  Transmission Date: 20060701
  Serious: Yes (Life-Threatening, Hospitalization)
  Sender: FDA-Public Use
  Company Number: 2006009385

PATIENT
  Age: 60 Year
  Sex: Male
  Weight: 117.9352 kg

DRUGS (15)
  1. SUTENT [Suspect]
     Indication: RENAL CELL CARCINOMA STAGE UNSPECIFIED
     Dosage: 50 MG (50 MG, 1 IN 1 D), ORAL
     Route: 048
     Dates: start: 20060118, end: 20060118
  2. ACETAMINOPHEN [Concomitant]
  3. METFORMIN HCL [Concomitant]
  4. HUMALOG [Concomitant]
  5. HYDROCHLOROTHIAZIDE [Concomitant]
  6. LANTUS [Concomitant]
  7. LEVOXYL [Concomitant]
  8. LEXAPRO [Concomitant]
  9. LIPITOR [Concomitant]
  10. LISINOPRIL [Concomitant]
  11. NORVASC [Concomitant]
  12. ALBUTEROL [Concomitant]
  13. MAG-OX (MAGNESIUM OXIDE) [Concomitant]
  14. CALCIUM (CALCIUM) [Concomitant]
  15. LEVAQUIN [Concomitant]

REACTIONS (2)
  - ANAPHYLACTIC REACTION [None]
  - PNEUMONIA [None]
